FAERS Safety Report 7633227-6 (Version None)
Quarter: 2011Q3

REPORT INFORMATION
  Report Type: 
  Country: None (occurrence: None)
  Receive Date: 20110725
  Receipt Date: 20110718
  Transmission Date: 20111222
  Serious: Yes (Other)
  Sender: FDA-Public Use
  Company Number: US-ROCHE-789742

PATIENT
  Age: 41 Year
  Sex: Male

DRUGS (10)
  1. AMITRIPTYLINE HCL [Suspect]
     Dosage: DOSE AND FREQUENCY UNKNOWN
     Route: 065
  2. NICOTINE [Suspect]
     Dosage: FREQUENCY REPORTED AS UNKNOWN
     Route: 055
  3. CARISOPRODOL [Suspect]
     Dosage: DOSE AND FREQUENCY REPORTED AS UNKNOWN
     Route: 065
  4. CLONAZEPAM [Suspect]
     Dosage: DOSE AND FREQUENCY UNKNOWN
     Route: 065
  5. ZOLPIDEM TARTRATE [Suspect]
     Dosage: DOSE AND FREQUENCY REPORTED AS UNKNOWN
     Route: 048
  6. ATORVASTATIN CALCIUM [Suspect]
     Route: 048
  7. ALPRAZOLAM [Suspect]
     Dosage: DOSE AND FREQUENCY REPORTED AS UNKNOWN
     Route: 065
  8. INDOMETHACIN [Suspect]
     Dosage: DOSE AND FREQUENCY REPORTED AS UNKNOWN
     Route: 065
  9. CYCLOBENZAPRINE HYDROCHLORIDE [Suspect]
     Dosage: DOSE AND FREQUENCY REPORTED AS UNKNOWN
     Route: 065
  10. SILDENAFIL CITRATE [Suspect]
     Dosage: FREQUENCY REPORTED AS UNKNOWN
     Route: 048

REACTIONS (4)
  - OESOPHAGEAL OPERATION [None]
  - CONVULSION [None]
  - IMPAIRED WORK ABILITY [None]
  - ANKLE FRACTURE [None]
